FAERS Safety Report 7488557-8 (Version None)
Quarter: 2011Q2

REPORT INFORMATION
  Report Type: 
  Country: None (occurrence: None)
  Receive Date: 20110518
  Receipt Date: 20110509
  Transmission Date: 20111010
  Serious: Yes (Other)
  Sender: FDA-Public Use
  Company Number: CN-ASTRAZENECA-2011SE27644

PATIENT
  Age: 12 Year
  Sex: Female

DRUGS (3)
  1. LIDOCAINE [Suspect]
     Indication: EPIDURAL ANAESTHESIA
     Route: 008
  2. BUPIVACAINE HCL [Suspect]
     Indication: EPIDURAL ANAESTHESIA
     Route: 008
  3. EPINEPHRINE [Suspect]
     Indication: EPIDURAL ANAESTHESIA
     Dosage: 5 DROPS
     Route: 008

REACTIONS (1)
  - PERONEAL NERVE INJURY [None]
